FAERS Safety Report 8239089-0 (Version None)
Quarter: 2012Q1

REPORT INFORMATION
  Report Type: 
  Country: None (occurrence: None)
  Receive Date: 20120327
  Receipt Date: 20120315
  Transmission Date: 20120608
  Serious: Yes (Hospitalization, Other)
  Sender: FDA-Public Use
  Company Number: IN-ELI_LILLY_AND_COMPANY-IN201203004560

PATIENT
  Age: 57 Year
  Sex: Female

DRUGS (4)
  1. FLUOXETINE HYDROCHLORIDE [Suspect]
     Dosage: 40 MG, QD
  2. METOPROLOL SUCCINATE [Concomitant]
     Dosage: 50 MG, THE MORNING OF SURGERY
  3. METOPROLOL SUCCINATE [Concomitant]
     Dosage: 100 MG, QD FOR LAST SEVEN YEARS
  4. FLUOXETINE HYDROCHLORIDE [Suspect]
     Dosage: 60 MG, QD

REACTIONS (2)
  - SEROTONIN SYNDROME [None]
  - CORONARY ARTERY OCCLUSION [None]
